FAERS Safety Report 4553088-1 (Version None)
Quarter: 2005Q1

REPORT INFORMATION
  Report Type: 
  Country: None (occurrence: None)
  Receive Date: 20050113
  Receipt Date: 20050103
  Transmission Date: 20050727
  Serious: Yes (Hospitalization)
  Sender: FDA-Public Use
  Company Number: 2005CG00028

PATIENT
  Age: 95 Year
  Sex: Female

DRUGS (13)
  1. OMEPRAZOLE [Suspect]
     Dosage: 20 MG QD PO
     Route: 048
     Dates: start: 20041020, end: 20041201
  2. FURADANTIN [Suspect]
     Dosage: 150 MG QD PO
     Route: 048
     Dates: start: 20041120, end: 20041127
  3. KARDEGIC /FRA/ [Suspect]
     Dosage: 75 MG QD PO
     Route: 048
     Dates: end: 20041127
  4. EQUANIL [Suspect]
     Dosage: 200 MG QD PO
     Route: 048
     Dates: start: 20040816, end: 20041127
  5. ESIDRIX [Suspect]
     Dosage: 12.5 MG QD PO
     Route: 048
     Dates: start: 20041102, end: 20041119
  6. ESIDRIX [Suspect]
     Dosage: 12.5 MG QD PO
     Route: 048
     Dates: start: 20041124, end: 20041127
  7. BISOPROLOL FUMARATE [Concomitant]
  8. ACUITEL [Concomitant]
  9. ARICEPT [Concomitant]
  10. IMOVANE [Concomitant]
  11. NITROGLYCERIN [Concomitant]
  12. DUPHALAC /NET/ [Concomitant]
  13. LASILIX [Concomitant]

REACTIONS (5)
  - HENOCH-SCHONLEIN PURPURA [None]
  - HYPONATRAEMIA [None]
  - LYMPHOPENIA [None]
  - NEUTROPENIA [None]
  - PYREXIA [None]
